FAERS Safety Report 9255702 (Version 2)
Quarter: 2013Q2

REPORT INFORMATION
  Report Type: Spontaneous
  Country: IT (occurrence: IT)
  Receive Date: 20130425
  Receipt Date: 20130425
  Transmission Date: 20140414
  Serious: Yes (Hospitalization)
  Sender: FDA-Public Use
  Company Number: GXKR2010IT00974

PATIENT
  Age: 68 Year
  Sex: Male

DRUGS (6)
  1. DOXORUBICINA EBEWE [Suspect]
     Indication: PRIMARY MEDIASTINAL LARGE B-CELL LYMPHOMA
     Dosage: 50 MG/M2/DAY
     Route: 042
     Dates: start: 20090423, end: 20090702
  2. ETOPOSIDE [Suspect]
     Indication: PRIMARY MEDIASTINAL LARGE B-CELL LYMPHOMA
     Dosage: 75 MG/M2/DAY
     Route: 042
     Dates: start: 20090507, end: 20090703
  3. MABTHERA [Suspect]
     Indication: PRIMARY MEDIASTINAL LARGE B-CELL LYMPHOMA
     Dosage: 375 MG/M2/DAY
     Route: 042
     Dates: start: 20090430, end: 20090625
  4. ENDOXAN BAXTER [Suspect]
     Indication: PRIMARY MEDIASTINAL LARGE B-CELL LYMPHOMA
     Dosage: 350 MG/M2/DAY
     Route: 042
     Dates: start: 20090423, end: 20090618
  5. VINCRISTINA [Suspect]
     Indication: PRIMARY MEDIASTINAL LARGE B-CELL LYMPHOMA
     Dosage: 1.4 MG/M2/DAY
     Route: 042
     Dates: start: 20090430, end: 20090713
  6. BLEOMYCINA [Suspect]
     Indication: PRIMARY MEDIASTINAL LARGE B-CELL LYMPHOMA
     Dosage: 10 MG/M2/DAY
     Route: 042
     Dates: start: 20090430, end: 20090713

REACTIONS (4)
  - Pulmonary embolism [Recovering/Resolving]
  - Device related sepsis [Recovering/Resolving]
  - Anaemia [Recovering/Resolving]
  - Respiratory tract infection [Recovering/Resolving]
